FAERS Safety Report 5941276-9 (Version None)
Quarter: 2008Q4

REPORT INFORMATION
  Report Type: 
  Country: None (occurrence: None)
  Receive Date: 20081103
  Receipt Date: 20081103
  Transmission Date: 20090506
  Serious: Yes (Other)
  Sender: FDA-Public Use
  Company Number: None

PATIENT
  Age: 61 Year
  Sex: Female
  Weight: 58.9676 kg

DRUGS (2)
  1. ACTONEL [Suspect]
     Indication: OSTEOPENIA
     Dosage: 35MG ONCE PER WEEK PO
     Route: 048
     Dates: start: 20030924, end: 20080917
  2. ACTONEL [Suspect]
     Indication: OSTEOPENIA
     Dosage: 140MG  ONCE PER MONTH PO
     Route: 048
     Dates: start: 20080924, end: 20080924

REACTIONS (8)
  - ARTHRALGIA [None]
  - BONE PAIN [None]
  - BREAST CANCER [None]
  - CHEST PAIN [None]
  - DYSPNOEA [None]
  - HEART RATE INCREASED [None]
  - MUSCLE SPASMS [None]
  - MYALGIA [None]
